FAERS Safety Report 19382364 (Version 3)
Quarter: 2021Q2

REPORT INFORMATION
  Report Type: Spontaneous
  Country: IT (occurrence: IT)
  Receive Date: 20210607
  Receipt Date: 20210628
  Transmission Date: 20210717
  Serious: Yes (Other)
  Sender: FDA-Public Use
  Company Number: IT-PFIZER INC-2021588602

PATIENT
  Age: 73 Year
  Sex: Female

DRUGS (2)
  1. LETROZOLO SANDOZ [Suspect]
     Active Substance: LETROZOLE
     Indication: CANCER HORMONAL THERAPY
     Route: 048
  2. PALBOCICLIB [Suspect]
     Active Substance: PALBOCICLIB
     Indication: BREAST CANCER METASTATIC
     Dosage: 125 MG, 1X/DAY
     Dates: start: 20210324, end: 20210328

REACTIONS (2)
  - Acute kidney injury [Recovered/Resolved]
  - Glomerular filtration rate decreased [Recovered/Resolved]

NARRATIVE: CASE EVENT DATE: 20210329
